FAERS Safety Report 10482965 (Version 1)
Quarter: 2014Q3

REPORT INFORMATION
  Report Type: Spontaneous
  Country: CA (occurrence: CA)
  Receive Date: 20140929
  Receipt Date: 20140929
  Transmission Date: 20150326
  Serious: Yes (Hospitalization, Other)
  Sender: FDA-Public Use
  Company Number: CA-009507513-1409CAN013578

PATIENT
  Age: 67 Year

DRUGS (1)
  1. FOSAMAX [Suspect]
     Active Substance: ALENDRONATE SODIUM
     Indication: PROPHYLAXIS
     Dosage: UNK
     Route: 048
     Dates: start: 2000, end: 201204

REACTIONS (4)
  - Femur fracture [Unknown]
  - Sciatica [Unknown]
  - Intramedullary rod insertion [Unknown]
  - Back pain [Unknown]

NARRATIVE: CASE EVENT DATE: 201207
